FAERS Safety Report 21173167 (Version 1)
Quarter: 2022Q3

REPORT INFORMATION
  Report Type: Spontaneous
  Country: US (occurrence: US)
  Receive Date: 20220804
  Receipt Date: 20220804
  Transmission Date: 20221026
  Serious: Yes (Other)
  Sender: FDA-Public Use
  Company Number: US-GLAND PHARMA LIMITED-2022US003772

PATIENT

DRUGS (5)
  1. CISPLATIN [Suspect]
     Active Substance: CISPLATIN
     Indication: Cholangiocarcinoma
     Dosage: 3 CYCLES (BEFORE TARE ADMINISTRATION)
     Route: 042
  2. CISPLATIN [Suspect]
     Active Substance: CISPLATIN
     Dosage: 3 CYCLES (AFTER TARE ADMINISTRATION)
     Route: 042
  3. GEMCITABINE [Suspect]
     Active Substance: GEMCITABINE
     Indication: Cholangiocarcinoma
     Dosage: 3 CYCLES (BEFORE TARE ADMINISTRATION)
     Route: 042
  4. GEMCITABINE [Suspect]
     Active Substance: GEMCITABINE
     Dosage: 3 CYCLES (AFTER TARE ADMINISTRATION)
     Route: 042
  5. CAPECITABINE [Suspect]
     Active Substance: CAPECITABINE
     Indication: Cholangiocarcinoma
     Dosage: UNK
     Route: 048

REACTIONS (2)
  - Hepatic failure [Unknown]
  - Off label use [Unknown]
